FAERS Safety Report 8316631-2 (Version None)
Quarter: 2012Q2

REPORT INFORMATION
  Report Type: 
  Country: None (occurrence: None)
  Receive Date: 20120424
  Receipt Date: 20120424
  Transmission Date: 20120825
  Serious: Yes (Hospitalization)
  Sender: FDA-Public Use
  Company Number: None

PATIENT
  Age: 79 Year
  Sex: Male
  Weight: 92.4 kg

DRUGS (1)
  1. SULFAMETHOXAZOLE AND TRIMETHOPRIM [Suspect]
     Indication: POSTOPERATIVE WOUND INFECTION
     Dosage: ORAL
     Route: 048
     Dates: start: 20120309

REACTIONS (4)
  - MUSCULAR WEAKNESS [None]
  - RENAL FAILURE ACUTE [None]
  - HYPERKALAEMIA [None]
  - HAEMODIALYSIS [None]
